FAERS Safety Report 5952504-8 (Version None)
Quarter: 2008Q4

REPORT INFORMATION
  Report Type: 
  Country: None (occurrence: None)
  Receive Date: 20081113
  Receipt Date: 20081027
  Transmission Date: 20090506
  Serious: Yes (Other)
  Sender: FDA-Public Use
  Company Number: US-PFIZER INC-2008094608

PATIENT
  Age: 53 Year
  Sex: Male

DRUGS (6)
  1. NELFINAVIR MESILATE [Suspect]
     Indication: HIV INFECTION
  2. STAVUDINE [Suspect]
     Indication: HIV INFECTION
  3. LAMIVUDINE [Suspect]
     Indication: HIV INFECTION
  4. DIDANOSINE [Suspect]
     Indication: HIV INFECTION
  5. ALL OTHER THERAPEUTIC PRODUCTS [Suspect]
     Indication: HIV INFECTION
  6. NEVIRAPINE [Suspect]
     Indication: HIV INFECTION

REACTIONS (7)
  - EYELID PTOSIS [None]
  - KAPOSI'S SARCOMA [None]
  - LIPODYSTROPHY ACQUIRED [None]
  - OPHTHALMOPLEGIA [None]
  - PERIPHERAL SENSORY NEUROPATHY [None]
  - PNEUMOCYSTIS JIROVECI PNEUMONIA [None]
  - SINUS BRADYCARDIA [None]
